FAERS Safety Report 24580873 (Version 2)
Quarter: 2025Q1

REPORT INFORMATION
  Report Type: Report from Study
  Country: UY (occurrence: UY)
  Receive Date: 20241105
  Receipt Date: 20250315
  Transmission Date: 20250409
  Serious: Yes (Life-Threatening, Hospitalization, Other)
  Sender: ABBVIE
  Company Number: UY-ABBVIE-5988203

PATIENT
  Age: 72 Year
  Sex: Female

DRUGS (1)
  1. RINVOQ [Suspect]
     Active Substance: UPADACITINIB
     Indication: Rheumatoid arthritis
     Dosage: LAST ADMINISTRATION DATE: 2024. FORM STRENGTH: 15 MILLIGRAM
     Route: 048
     Dates: start: 20240327

REACTIONS (6)
  - Seizure [Unknown]
  - Fall [Unknown]
  - Arthralgia [Unknown]
  - Hospitalisation [Unknown]
  - Arthralgia [Unknown]
  - Gait disturbance [Unknown]

NARRATIVE: CASE EVENT DATE: 20240101
